FAERS Safety Report 19471984 (Version 1)
Quarter: 2021Q2

REPORT INFORMATION
  Report Type: Spontaneous
  Country: CN (occurrence: CN)
  Receive Date: 20210629
  Receipt Date: 20210629
  Transmission Date: 20210717
  Serious: Yes (Other)
  Sender: FDA-Public Use
  Company Number: CN-ASTRAZENECA-2021A558099

PATIENT
  Age: 11688 Day
  Sex: Female
  Weight: 58 kg

DRUGS (2)
  1. STERILE WATER [Concomitant]
     Active Substance: WATER
     Indication: PROPHYLAXIS
     Route: 055
     Dates: start: 20210605, end: 20210605
  2. BUDESONIDE. [Suspect]
     Active Substance: BUDESONIDE
     Indication: PROPHYLAXIS
     Route: 055
     Dates: start: 20210605, end: 20210605

REACTIONS (1)
  - Muscle twitching [Recovering/Resolving]

NARRATIVE: CASE EVENT DATE: 20210605
